FAERS Safety Report 17845204 (Version 1)
Quarter: 2020Q2

REPORT INFORMATION
  Report Type: Spontaneous
  Country: CH (occurrence: CH)
  Receive Date: 20200601
  Receipt Date: 20200601
  Transmission Date: 20200714
  Serious: Yes (Life-Threatening, Hospitalization)
  Sender: FDA-Public Use
  Company Number: CH-ROCHE-2611246

PATIENT
  Sex: Female
  Weight: 78 kg

DRUGS (4)
  1. SPIRICORT [Suspect]
     Active Substance: PREDNISOLONE
     Indication: IMMUNOSUPPRESSANT DRUG THERAPY
     Route: 048
     Dates: start: 2012, end: 20200425
  2. CELLCEPT [Suspect]
     Active Substance: MYCOPHENOLATE MOFETIL\MYCOPHENOLATE MOFETIL HYDROCHLORIDE
     Indication: IMMUNOSUPPRESSANT DRUG THERAPY
     Route: 065
     Dates: start: 2012, end: 20200417
  3. SPIRICORT [Suspect]
     Active Substance: PREDNISOLONE
     Dosage: REDUCED AGAIN FROM 05.05.2020 ONGOING
     Route: 048
     Dates: start: 20200426
  4. PROGRAF [Suspect]
     Active Substance: TACROLIMUS
     Indication: IMMUNOSUPPRESSANT DRUG THERAPY
     Route: 065
     Dates: start: 2012, end: 20200425

REACTIONS (1)
  - COVID-19 [Recovered/Resolved]
